FAERS Safety Report 7814206-2 (Version None)
Quarter: 2011Q4

REPORT INFORMATION
  Report Type: 
  Country: None (occurrence: None)
  Receive Date: 20111014
  Receipt Date: 20111007
  Transmission Date: 20120403
  Serious: Yes (Hospitalization)
  Sender: FDA-Public Use
  Company Number: FR-UCBSA-043076

PATIENT
  Age: 17 Year
  Sex: Male

DRUGS (5)
  1. AMOXICILLIN TRIHYDRATE [Concomitant]
     Dosage: TOTAL DAILY DOSE: 3 G
     Route: 042
     Dates: start: 20110923, end: 20110927
  2. KEPPRA [Suspect]
     Indication: CONVULSION
     Route: 048
     Dates: start: 20110814, end: 20111002
  3. TARGOCID [Concomitant]
     Dosage: TOTAL DAILY DOSE: 1.2 G
     Route: 042
     Dates: start: 20110927, end: 20111002
  4. NEXIUM [Suspect]
     Route: 048
     Dates: end: 20111002
  5. CLAFORAN [Concomitant]
     Dates: start: 20110917, end: 20110923

REACTIONS (3)
  - AGRANULOCYTOSIS [None]
  - PYREXIA [None]
  - ENTEROCOCCAL INFECTION [None]
